FAERS Safety Report 5068805-4 (Version None)
Quarter: 2006Q3

REPORT INFORMATION
  Report Type: 
  Country: None (occurrence: None)
  Receive Date: 20060802
  Receipt Date: 20060407
  Transmission Date: 20061208
  Serious: Yes (Hospitalization)
  Sender: FDA-Public Use
  Company Number: US-BRISTOL-MYERS SQUIBB COMPANY-13341011

PATIENT
  Age: 72 Year
  Sex: Female
  Weight: 67 kg

DRUGS (11)
  1. COUMADIN [Suspect]
     Indication: CARDIOMYOPATHY
     Dosage: DURATION: 4 1/2 YEARS
  2. COUMADIN [Suspect]
     Indication: ATRIAL FIBRILLATION
     Dosage: DURATION: 4 1/2 YEARS
  3. COUMADIN [Suspect]
     Indication: CARDIAC PACEMAKER INSERTION
     Dosage: DURATION: 4 1/2 YEARS
  4. COUMADIN [Suspect]
     Indication: IMPLANTABLE DEFIBRILLATOR INSERTION
     Dosage: DURATION: 4 1/2 YEARS
  5. MEDROL [Concomitant]
     Dosage: 4 MG DAILY FOR 5 DAYS WITH A LOADING DOSE OF 16 MG
     Dates: start: 20060406, end: 20060401
  6. TIKOSYN [Concomitant]
     Dates: start: 20020101
  7. FUROSEMIDE [Concomitant]
     Dates: start: 20020101
  8. SYNTHROID [Concomitant]
     Dates: start: 20020101
  9. TOPROL-XL [Concomitant]
     Dates: start: 20020101
  10. QUINAPRIL [Concomitant]
     Dates: start: 20020101
  11. LUMIGAN [Concomitant]

REACTIONS (3)
  - INTERNATIONAL NORMALISED RATIO INCREASED [None]
  - THROMBOSIS [None]
  - TRANSIENT ISCHAEMIC ATTACK [None]
